FAERS Safety Report 24089435 (Version 2)
Quarter: 2024Q3

REPORT INFORMATION
  Report Type: Spontaneous
  Country: US (occurrence: US)
  Receive Date: 20240715
  Receipt Date: 20240805
  Transmission Date: 20241017
  Serious: Yes (Hospitalization)
  Sender: SANOFI AVENTIS
  Company Number: US-SA-SAC20240712000019

PATIENT
  Age: 57 Year
  Sex: Female
  Weight: 65.77 kg

DRUGS (47)
  1. KEVZARA [Suspect]
     Active Substance: SARILUMAB
     Indication: Rheumatoid arthritis
     Dosage: 200 MG, QOW
     Route: 058
     Dates: start: 202401
  2. KEVZARA [Suspect]
     Active Substance: SARILUMAB
     Indication: Idiopathic pulmonary fibrosis
  3. KEVZARA [Suspect]
     Active Substance: SARILUMAB
     Indication: Lymphoedema
  4. KEVZARA [Suspect]
     Active Substance: SARILUMAB
     Indication: Narcolepsy
  5. KEVZARA [Suspect]
     Active Substance: SARILUMAB
     Indication: Obsessive-compulsive disorder
  6. KEVZARA [Suspect]
     Active Substance: SARILUMAB
     Indication: Neuropathy peripheral
  7. KEVZARA [Suspect]
     Active Substance: SARILUMAB
     Indication: Thyroid disorder
  8. KEVZARA [Suspect]
     Active Substance: SARILUMAB
     Indication: Scoliosis
  9. TYVASO [Concomitant]
     Active Substance: TREPROSTINIL
  10. OFEV [Concomitant]
     Active Substance: NINTEDANIB
  11. OFEV [Concomitant]
     Active Substance: NINTEDANIB
  12. METOLAZONE [Concomitant]
     Active Substance: METOLAZONE
  13. METOLAZONE [Concomitant]
     Active Substance: METOLAZONE
  14. ARAVA [Concomitant]
     Active Substance: LEFLUNOMIDE
  15. ARAVA [Concomitant]
     Active Substance: LEFLUNOMIDE
  16. ACAMPROSATE CALCIUM [Concomitant]
     Active Substance: ACAMPROSATE CALCIUM
  17. ACAMPROSATE CALCIUM [Concomitant]
     Active Substance: ACAMPROSATE CALCIUM
  18. ALBUTEROL SULFATE [Concomitant]
     Active Substance: ALBUTEROL SULFATE
  19. ALBUTEROL SULFATE [Concomitant]
     Active Substance: ALBUTEROL SULFATE
  20. TRELEGY ELLIPTA [Concomitant]
     Active Substance: FLUTICASONE FUROATE\UMECLIDINIUM BROMIDE\VILANTEROL TRIFENATATE
  21. TRELEGY ELLIPTA [Concomitant]
     Active Substance: FLUTICASONE FUROATE\UMECLIDINIUM BROMIDE\VILANTEROL TRIFENATATE
  22. VITAMINS NOS [Concomitant]
     Active Substance: VITAMINS
  23. VITAMINS NOS [Concomitant]
     Active Substance: VITAMINS
  24. SYNTHROID [Concomitant]
     Active Substance: LEVOTHYROXINE SODIUM
  25. SYNTHROID [Concomitant]
     Active Substance: LEVOTHYROXINE SODIUM
  26. SPIRONOLACTONE [Concomitant]
     Active Substance: SPIRONOLACTONE
  27. SPIRONOLACTONE [Concomitant]
     Active Substance: SPIRONOLACTONE
  28. PREDNISONE [Concomitant]
     Active Substance: PREDNISONE
  29. PREDNISONE [Concomitant]
     Active Substance: PREDNISONE
  30. POTASSIUM CHLORIDE [Concomitant]
     Active Substance: POTASSIUM CHLORIDE
  31. POTASSIUM CHLORIDE [Concomitant]
     Active Substance: POTASSIUM CHLORIDE
  32. OXYGEN [Concomitant]
     Active Substance: OXYGEN
  33. OXYGEN [Concomitant]
     Active Substance: OXYGEN
  34. LAMICTAL [Concomitant]
     Active Substance: LAMOTRIGINE
  35. LAMICTAL [Concomitant]
     Active Substance: LAMOTRIGINE
  36. GABAPENTIN [Concomitant]
     Active Substance: GABAPENTIN
  37. GABAPENTIN [Concomitant]
     Active Substance: GABAPENTIN
  38. PROZAC [Concomitant]
     Active Substance: FLUOXETINE HYDROCHLORIDE
  39. PROZAC [Concomitant]
     Active Substance: FLUOXETINE HYDROCHLORIDE
  40. VITAMIN B12 [Concomitant]
     Active Substance: CYANOCOBALAMIN
  41. BUSPIRONE HCL [Concomitant]
     Active Substance: BUSPIRONE HYDROCHLORIDE
  42. BUSPIRONE HCL [Concomitant]
     Active Substance: BUSPIRONE HYDROCHLORIDE
  43. SUBOXONE [Concomitant]
     Active Substance: BUPRENORPHINE HYDROCHLORIDE\NALOXONE HYDROCHLORIDE
  44. SUBOXONE [Concomitant]
     Active Substance: BUPRENORPHINE HYDROCHLORIDE\NALOXONE HYDROCHLORIDE
  45. ACTEMRA [Concomitant]
     Active Substance: TOCILIZUMAB
  46. VITAMIN B COMPLEX [Concomitant]
     Active Substance: CYANOCOBALAMIN\DEXPANTHENOL\NIACINAMIDE\PYRIDOXINE HYDROCHLORIDE\RIBOFLAVIN 5^-PHOSPHATE SODIUM\THIA
  47. CYANOCOBALAMIN [Concomitant]
     Active Substance: CYANOCOBALAMIN

REACTIONS (5)
  - Lung disorder [Unknown]
  - Foot fracture [Unknown]
  - Oedema peripheral [Unknown]
  - Peripheral swelling [Unknown]
  - Product use in unapproved indication [Unknown]

NARRATIVE: CASE EVENT DATE: 20240101
